FAERS Safety Report 4708255-0 (Version None)
Quarter: 2005Q3

REPORT INFORMATION
  Report Type: 
  Country: None (occurrence: None)
  Receive Date: 20050707
  Receipt Date: 20050704
  Transmission Date: 20060218
  Serious: Yes (Death, Hospitalization)
  Sender: FDA-Public Use
  Company Number: PHNR2005AU01057

PATIENT

DRUGS (1)
  1. TEGRETOL [Suspect]
     Indication: HERPES ZOSTER
     Dosage: 200 MG, QD
     Route: 048
     Dates: start: 20040802

REACTIONS (6)
  - AGRANULOCYTOSIS [None]
  - EOSINOPHIL COUNT DECREASED [None]
  - LYMPHOCYTE COUNT DECREASED [None]
  - MONOCYTE COUNT DECREASED [None]
  - NEUTROPHIL COUNT DECREASED [None]
  - WHITE BLOOD CELL COUNT DECREASED [None]
